FAERS Safety Report 6260751-3 (Version None)
Quarter: 2009Q3

REPORT INFORMATION
  Report Type: 
  Country: None (occurrence: None)
  Receive Date: 20090708
  Receipt Date: 20090701
  Transmission Date: 20100115
  Serious: Yes (Hospitalization)
  Sender: FDA-Public Use
  Company Number: US-AMGEN-QUU354084

PATIENT
  Sex: Female

DRUGS (2)
  1. ENBREL [Suspect]
     Indication: RHEUMATOID ARTHRITIS
     Route: 058
     Dates: start: 19990101
  2. METHOTREXATE [Concomitant]
     Dates: start: 19990101

REACTIONS (6)
  - ACCIDENTAL NEEDLE STICK [None]
  - ANKLE OPERATION [None]
  - GALLBLADDER OPERATION [None]
  - HIATUS HERNIA [None]
  - HIP ARTHROPLASTY [None]
  - KNEE ARTHROPLASTY [None]
